FAERS Safety Report 6421811-7 (Version None)
Quarter: 2009Q4

REPORT INFORMATION
  Report Type: 
  Country: None (occurrence: None)
  Receive Date: 20091030
  Receipt Date: 20091026
  Transmission Date: 20100525
  Serious: Yes (Hospitalization)
  Sender: FDA-Public Use
  Company Number: B0591885A

PATIENT
  Sex: Female
  Weight: 65 kg

DRUGS (5)
  1. LAPATINIB [Suspect]
     Indication: BREAST CANCER
     Dosage: 1000MG PER DAY
     Route: 048
     Dates: start: 20090819
  2. TRASTUZUMAB [Suspect]
     Indication: BREAST CANCER
     Dosage: 2MGK WEEKLY
     Route: 042
     Dates: start: 20090819
  3. PACLITAXEL [Suspect]
     Indication: BREAST CANCER
     Dosage: 80MGK WEEKLY
     Route: 042
     Dates: start: 20090819
  4. ATENOLOL [Concomitant]
     Indication: HYPERTENSION
     Dosage: 50MG PER DAY
     Route: 048
     Dates: start: 20081201, end: 20090909
  5. DYTA-URESE [Concomitant]
     Indication: HYPERTENSION
     Route: 048
     Dates: start: 20081201, end: 20090915

REACTIONS (5)
  - ARTHRALGIA [None]
  - DIARRHOEA [None]
  - FEBRILE NEUTROPENIA [None]
  - MALAISE [None]
  - MYALGIA [None]
